FAERS Safety Report 14664673 (Version 1)
Quarter: 2018Q1

REPORT INFORMATION
  Report Type: Spontaneous
  Country: US (occurrence: US)
  Receive Date: 20180319
  Receipt Date: 20180319
  Transmission Date: 20180509
  Serious: Yes (Other)
  Sender: FDA-Public Use
  Company Number: None

PATIENT
  Age: 49 Year
  Sex: Female
  Weight: 79.4 kg

DRUGS (18)
  1. CLONIDINE. [Concomitant]
     Active Substance: CLONIDINE
  2. DULOXETINE. [Concomitant]
     Active Substance: DULOXETINE
  3. TYLENOL PM [Concomitant]
     Active Substance: ACETAMINOPHEN\DIPHENHYDRAMINE
  4. MULTIVITAMIN WITH MINERALS [Concomitant]
     Active Substance: MINERALS\VITAMINS
  5. FERRIC CITRATE [Concomitant]
     Active Substance: TETRAFERRIC TRICITRATE DECAHYDRATE
  6. ZEPATIER [Suspect]
     Active Substance: ELBASVIR\GRAZOPREVIR
     Indication: CHRONIC HEPATITIS C
     Route: 048
     Dates: start: 20180310, end: 20180314
  7. ALBUTEROL HFA [Concomitant]
     Active Substance: ALBUTEROL SULFATE
  8. BISACODYL. [Concomitant]
     Active Substance: BISACODYL
  9. POTASSIUM CHLORIDE. [Concomitant]
     Active Substance: POTASSIUM CHLORIDE
  10. LOSARTAN. [Concomitant]
     Active Substance: LOSARTAN
  11. LEVEMIR [Concomitant]
     Active Substance: INSULIN DETEMIR
  12. FUROSEMIDE. [Concomitant]
     Active Substance: FUROSEMIDE
  13. MELATONIN [Concomitant]
     Active Substance: MELATONIN
  14. GABAPENTIN. [Concomitant]
     Active Substance: GABAPENTIN
  15. OMEPRAZOLE. [Concomitant]
     Active Substance: OMEPRAZOLE
  16. CARVEDILOL. [Concomitant]
     Active Substance: CARVEDILOL
  17. DILTIAZEM. [Concomitant]
     Active Substance: DILTIAZEM
  18. ASPIRIN. [Concomitant]
     Active Substance: ASPIRIN

REACTIONS (4)
  - Swelling face [None]
  - Nausea [None]
  - Eye swelling [None]
  - Fatigue [None]

NARRATIVE: CASE EVENT DATE: 20180314
